FAERS Safety Report 13923881 (Version 1)
Quarter: 2017Q3

REPORT INFORMATION
  Report Type: Spontaneous
  Country: US (occurrence: None)
  Receive Date: 20170830
  Receipt Date: 20170830
  Transmission Date: 20171127
  Serious: No
  Sender: FDA-Public Use
  Company Number: None

PATIENT
  Age: 73 Year
  Sex: Female

DRUGS (1)
  1. PRALUENT [Suspect]
     Active Substance: ALIROCUMAB
     Indication: TYPE IIA HYPERLIPIDAEMIA
     Dosage: 75 MG (1 PEN) EVERY 2 WEEKS SQ
     Route: 058
     Dates: start: 20170717

REACTIONS (2)
  - Accidental exposure to product [None]
  - Wrong technique in device usage process [None]

NARRATIVE: CASE EVENT DATE: 20170717
